FAERS Safety Report 12060442 (Version 2)
Quarter: 2016Q1

REPORT INFORMATION
  Report Type: Report from Study
  Country: US (occurrence: US)
  Receive Date: 20160210
  Receipt Date: 20160308
  Transmission Date: 20160526
  Serious: Yes (Hospitalization, Other)
  Sender: FDA-Public Use
  Company Number: US-JNJFOC-20160102695

PATIENT
  Sex: Female
  Weight: 59 kg

DRUGS (14)
  1. PROZAC [Concomitant]
     Active Substance: FLUOXETINE HYDROCHLORIDE
  2. IMBRUVICA [Suspect]
     Active Substance: IBRUTINIB
     Indication: CHRONIC LYMPHOCYTIC LEUKAEMIA
     Route: 048
     Dates: start: 20150511
  3. REQUIP [Concomitant]
     Active Substance: ROPINIROLE HYDROCHLORIDE
  4. ALLOPURINOL. [Concomitant]
     Active Substance: ALLOPURINOL
  5. CALCIUM [Concomitant]
     Active Substance: CALCIUM
  6. EXELON [Concomitant]
     Active Substance: RIVASTIGMINE TARTRATE
  7. VITAMIN B12 [Concomitant]
     Active Substance: CYANOCOBALAMIN
  8. VITAMIN D [Concomitant]
     Active Substance: CHOLECALCIFEROL
  9. POTASSIUM [Concomitant]
     Active Substance: POTASSIUM
  10. REMERON [Concomitant]
     Active Substance: MIRTAZAPINE
  11. IMBRUVICA [Suspect]
     Active Substance: IBRUTINIB
     Indication: CHRONIC LYMPHOCYTIC LEUKAEMIA
     Route: 048
     Dates: start: 20140227
  12. MEGACE [Concomitant]
     Active Substance: MEGESTROL ACETATE
  13. MULTIVITAMINS [Concomitant]
     Active Substance: VITAMINS
  14. XANAX [Concomitant]
     Active Substance: ALPRAZOLAM

REACTIONS (4)
  - Postmenopausal haemorrhage [Recovered/Resolved]
  - Adverse event [Unknown]
  - Uterine leiomyoma [Recovered/Resolved]
  - Diarrhoea [Unknown]

NARRATIVE: CASE EVENT DATE: 2015
